FAERS Safety Report 15430572 (Version 1)
Quarter: 2018Q3

REPORT INFORMATION
  Report Type: Spontaneous
  Country: US (occurrence: US)
  Receive Date: 20180921
  Receipt Date: 20180921
  Transmission Date: 20181010
  Serious: Yes (Hospitalization)
  Sender: FDA-Public Use
  Company Number: None

PATIENT
  Sex: Male

DRUGS (21)
  1. BOOST [Concomitant]
     Active Substance: DIETARY SUPPLEMENT
  2. HYPERSAL [Concomitant]
  3. STRATTERA [Concomitant]
     Active Substance: ATOMOXETINE HYDROCHLORIDE
  4. URSODIOL. [Concomitant]
     Active Substance: URSODIOL
  5. ALBUTEROL. [Concomitant]
     Active Substance: ALBUTEROL
  6. AQUADEKS [Concomitant]
     Active Substance: MINERALS\VITAMINS
  7. FEXOFENADINE [Concomitant]
     Active Substance: FEXOFENADINE\FEXOFENADINE HYDROCHLORIDE
  8. VITAMIND [Concomitant]
  9. CREON [Concomitant]
     Active Substance: PANCRELIPASE AMYLASE\PANCRELIPASE LIPASE\PANCRELIPASE PROTEASE
  10. CYPROHEPTAD [Concomitant]
  11. LANTUS [Concomitant]
     Active Substance: INSULIN GLARGINE
  12. PULMOZYME [Suspect]
     Active Substance: DORNASE ALFA
     Indication: CYSTIC FIBROSIS
     Route: 055
     Dates: start: 20140226
  13. AZITHROMYCIN ANHYDROUS. [Concomitant]
     Active Substance: AZITHROMYCIN ANHYDROUS
  14. FLONASE [Concomitant]
     Active Substance: FLUTICASONE PROPIONATE
  15. GENTAM/NACL [Concomitant]
  16. ORKAMBI [Concomitant]
     Active Substance: IVACAFTOR\LUMACAFTOR
  17. COLACE [Concomitant]
     Active Substance: DOCUSATE SODIUM
  18. SYMDEKO [Concomitant]
     Active Substance: IVACAFTOR\TEZACAFTOR
  19. ALLEGRA [Concomitant]
     Active Substance: FEXOFENADINE HYDROCHLORIDE
  20. ADVAIR HFA [Concomitant]
     Active Substance: FLUTICASONE PROPIONATE\SALMETEROL XINAFOATE
  21. SINGULAIR [Concomitant]
     Active Substance: MONTELUKAST SODIUM

REACTIONS (1)
  - Pulmonary function test decreased [None]
